FAERS Safety Report 5564510-6 (Version None)
Quarter: 2007Q4

REPORT INFORMATION
  Report Type: 
  Country: None (occurrence: None)
  Receive Date: 20071218
  Receipt Date: 20071210
  Transmission Date: 20080405
  Serious: Yes (Hospitalization)
  Sender: FDA-Public Use
  Company Number: PL-ELI_LILLY_AND_COMPANY-PL200708006905

PATIENT
  Sex: Female
  Weight: 91 kg

DRUGS (8)
  1. LISPRO [Suspect]
     Indication: DIABETES MELLITUS
     Dosage: 47 U, 3/D
     Route: 058
     Dates: start: 20050331
  2. SIMVAHEXAL [Concomitant]
     Indication: ANGINA PECTORIS
     Dosage: UNK, UNK
     Dates: start: 20050316
  3. EFFOX [Concomitant]
     Indication: ANGINA PECTORIS
     Dosage: UNK, UNK
     Dates: start: 20050930
  4. NITROMINT [Concomitant]
     Indication: ANGINA PECTORIS
     Dosage: UNK, UNK
     Dates: start: 20051215
  5. SPIRONOL [Concomitant]
     Indication: OEDEMA PERIPHERAL
     Dosage: UNK, UNK
     Dates: start: 20051215
  6. TRITACE [Concomitant]
     Indication: HYPERTENSION
     Dosage: UNK, UNK
     Dates: start: 20060209
  7. BISOCARD [Concomitant]
     Indication: PROPHYLAXIS
     Dosage: UNK, UNK
     Dates: start: 20060328
  8. LACIPIL [Concomitant]
     Indication: HYPERTENSION
     Dosage: UNK, UNK
     Dates: start: 20051107

REACTIONS (1)
  - UTERINE POLYP [None]
